FAERS Safety Report 21119744 (Version 1)
Quarter: 2022Q3

REPORT INFORMATION
  Report Type: Spontaneous
  Country: US (occurrence: None)
  Receive Date: 20220721
  Receipt Date: 20220721
  Transmission Date: 20221027
  Serious: Yes (Life-Threatening, Hospitalization, Disabling, Other)
  Sender: FDA-Public Use
  Company Number: None

PATIENT
  Age: 50 Year
  Sex: Female
  Weight: 54 kg

DRUGS (3)
  1. BOTOX [Suspect]
     Active Substance: ONABOTULINUMTOXINA
     Indication: Skin cosmetic procedure
     Route: 030
     Dates: start: 20220208
  2. FISH OIL [Concomitant]
     Active Substance: FISH OIL
  3. VITAMIN D3 [Concomitant]
     Active Substance: CHOLECALCIFEROL

REACTIONS (53)
  - Muscular weakness [None]
  - Throat tightness [None]
  - Vision blurred [None]
  - Dyspnoea [None]
  - Muscular weakness [None]
  - Hypoaesthesia [None]
  - Back pain [None]
  - Pain in extremity [None]
  - Adverse drug reaction [None]
  - Hypokinesia [None]
  - Muscle spasms [None]
  - Neuralgia [None]
  - Antinuclear antibody positive [None]
  - Spinal pain [None]
  - Phlebitis [None]
  - Cardiovascular disorder [None]
  - Antiphospholipid syndrome [None]
  - Head discomfort [None]
  - Neuropathy peripheral [None]
  - Alopecia [None]
  - Tinnitus [None]
  - Skin wrinkling [None]
  - Dry mouth [None]
  - Dry skin [None]
  - Dry eye [None]
  - Insomnia [None]
  - Hypertonic bladder [None]
  - Weight decreased [None]
  - Hypovitaminosis [None]
  - Nervous system disorder [None]
  - Thrombosis [None]
  - Menopause [None]
  - Serum ferritin decreased [None]
  - Vitamin D deficiency [None]
  - Thyroid function test abnormal [None]
  - Pelvic organ prolapse [None]
  - Soft tissue atrophy [None]
  - Autoimmune disorder [None]
  - Gait disturbance [None]
  - Vasculitis [None]
  - Dizziness [None]
  - Fatigue [None]
  - Lid sulcus deepened [None]
  - Collagen disorder [None]
  - Gastrointestinal disorder [None]
  - Bladder disorder [None]
  - Blood arsenic increased [None]
  - Blood lead [None]
  - Blood mercury [None]
  - Multi-organ disorder [None]
  - Chills [None]
  - Muscle atrophy [None]
  - Scalloped tongue [None]

NARRATIVE: CASE EVENT DATE: 20220209
